FAERS Safety Report 10754785 (Version 2)
Quarter: 2015Q1

REPORT INFORMATION
  Report Type: Spontaneous
  Country: US (occurrence: US)
  Receive Date: 20150202
  Receipt Date: 20150319
  Transmission Date: 20150721
  Serious: No
  Sender: FDA-Public Use
  Company Number: US-PFIZER INC-2015034842

PATIENT
  Age: 63 Year
  Sex: Male
  Weight: 73 kg

DRUGS (1)
  1. SUTENT [Suspect]
     Active Substance: SUNITINIB MALATE
     Indication: RENAL CANCER
     Dosage: 25 MG, UNK
     Dates: start: 2012, end: 201407

REACTIONS (7)
  - Renal cancer [Not Recovered/Not Resolved]
  - Rash [Recovered/Resolved]
  - Blister [Recovered/Resolved]
  - Disease progression [Not Recovered/Not Resolved]
  - Diarrhoea [Recovered/Resolved]
  - Nausea [Recovered/Resolved]
  - Blood blister [Recovered/Resolved]

NARRATIVE: CASE EVENT DATE: 2012
